FAERS Safety Report 6581193-7 (Version None)
Quarter: 2010Q1

REPORT INFORMATION
  Report Type: 
  Country: None (occurrence: None)
  Receive Date: 20100203
  Receipt Date: 20100118
  Transmission Date: 20100710
  Serious: Yes (Death)
  Sender: FDA-Public Use
  Company Number: B0627666A

PATIENT
  Age: 37 Year
  Sex: Female

DRUGS (8)
  1. LAMOTRIGINE [Suspect]
     Dosage: ORAL
     Route: 048
  2. ACETAMINOPHEN [Suspect]
     Dosage: ORAL
     Route: 048
  3. BUPROPION HYDROCHLORIDE [Suspect]
     Dosage: ORAL
     Route: 048
  4. ANTIDEPRESSANT (FORMULATION UNKNOWN) (ANTIDEPRESSANT) [Suspect]
     Dosage: ORAL
     Route: 048
  5. ANTICONVUSLANT (FORMULATION UNKNOWN) (ANTICONVUSLANT) [Suspect]
     Dosage: ORAL
     Route: 048
  6. NEUROLEPTIC (FORMULATION UNKNOWN) (NEUROLEPTIC) [Suspect]
     Dosage: ORAL
     Route: 048
  7. SSRI (FORMULATION UNKNOWN) (SSRI) [Suspect]
     Dosage: ORAL
     Route: 048
  8. ANTIHISTAMINE (FORMULATION UNKNOWN) (ANTIHISTAMINE) [Suspect]
     Dosage: ORAL
     Route: 048

REACTIONS (2)
  - CARDIO-RESPIRATORY ARREST [None]
  - COMPLETED SUICIDE [None]
